FAERS Safety Report 6441087-4 (Version None)
Quarter: 2009Q4

REPORT INFORMATION
  Report Type: 
  Country: None (occurrence: None)
  Receive Date: 20091116
  Receipt Date: 20091110
  Transmission Date: 20100525
  Serious: Yes (Other)
  Sender: FDA-Public Use
  Company Number: ES-ROCHE-667808

PATIENT
  Sex: Male

DRUGS (6)
  1. PEG-INTERFERON ALFA 2A (RO 25-8310) [Suspect]
     Route: 058
     Dates: start: 20090305, end: 20090912
  2. PEG-INTERFERON ALFA 2A (RO 25-8310) [Suspect]
     Route: 058
     Dates: start: 20090924, end: 20091104
  3. RIBAVIRIN [Suspect]
     Route: 048
     Dates: start: 20090305, end: 20090912
  4. RIBAVIRIN [Suspect]
     Route: 048
     Dates: start: 20090921, end: 20091104
  5. BLINDED DEBIO-025 (UNIL-025) [Suspect]
     Route: 048
     Dates: start: 20090305, end: 20090912
  6. BLINDED DEBIO-025 (UNIL-025) [Suspect]
     Route: 048
     Dates: start: 20090921, end: 20091104

REACTIONS (1)
  - AXONAL NEUROPATHY [None]
